FAERS Safety Report 7827776-5 (Version None)
Quarter: 2011Q4

REPORT INFORMATION
  Report Type: 
  Country: None (occurrence: None)
  Receive Date: 20111017
  Receipt Date: 20111009
  Transmission Date: 20120403
  Serious: Yes (Hospitalization, Other)
  Sender: FDA-Public Use
  Company Number: 2011100053

PATIENT
  Age: 18 Year
  Sex: Male
  Weight: 54.4316 kg

DRUGS (3)
  1. DEPAKOTE [Concomitant]
  2. FELBATOL [Suspect]
     Indication: LENNOX-GASTAUT SYNDROME
     Dosage: 2400;1200 MG (1200;600 MG, 2 IN 1 D)
     Dates: start: 20110801
  3. FELBATOL [Suspect]
     Indication: LENNOX-GASTAUT SYNDROME
     Dosage: 2400;1200 MG (1200;600 MG, 2 IN 1 D)
     Dates: end: 20110801

REACTIONS (4)
  - GRAND MAL CONVULSION [None]
  - DECREASED APPETITE [None]
  - WEIGHT DECREASED [None]
  - CONDITION AGGRAVATED [None]
